FAERS Safety Report 10180984 (Version 1)
Quarter: 2014Q2

REPORT INFORMATION
  Report Type: Spontaneous
  Country: US (occurrence: US)
  Receive Date: 20140519
  Receipt Date: 20140519
  Transmission Date: 20141212
  Serious: Yes (Other)
  Sender: FDA-Public Use
  Company Number: US-TEVA-482218USA

PATIENT
  Age: 57 Year
  Sex: Female

DRUGS (2)
  1. PROAIR HFA [Suspect]
  2. QVAR [Suspect]

REACTIONS (3)
  - Ligament operation [Unknown]
  - Bone operation [Unknown]
  - Carpal tunnel syndrome [Unknown]
